FAERS Safety Report 8992391 (Version 1)
Quarter: 2012Q4

REPORT INFORMATION
  Report Type: 
  Country: DE (occurrence: DE)
  Receive Date: 20121231
  Receipt Date: 20121231
  Transmission Date: 20130627
  Serious: Yes (Other)
  Sender: FDA-Public Use
  Company Number: DE-JNJFOC-20121213294

PATIENT
  Age: 62 Year
  Sex: Female

DRUGS (4)
  1. PALIPERIDONE [Suspect]
     Indication: PSYCHOTIC DISORDER
     Route: 048
  2. PALIPERIDONE [Suspect]
     Indication: MAJOR DEPRESSION
     Route: 048
  3. ESCITALOPRAM [Suspect]
     Indication: PSYCHOTIC DISORDER
     Route: 065
  4. ESCITALOPRAM [Suspect]
     Indication: MAJOR DEPRESSION
     Route: 065

REACTIONS (7)
  - Masked facies [Recovering/Resolving]
  - Akathisia [Recovering/Resolving]
  - Choreoathetosis [Recovering/Resolving]
  - Myoclonus [Recovering/Resolving]
  - Muscle rigidity [Recovering/Resolving]
  - Agitation [Recovering/Resolving]
  - Nervousness [Recovering/Resolving]
